FAERS Safety Report 8539321 (Version 2)
Quarter: 2014Q2

REPORT INFORMATION
  Report Type: Spontaneous
  Country: US (occurrence: US)
  Receive Date: 20120501
  Receipt Date: 20140516
  Transmission Date: 20141212
  Serious: No
  Sender: FDA-Public Use
  Company Number: US-SANOFI-AVENTIS-2011SA064419

PATIENT
  Age: 57 Year
  Sex: Female

DRUGS (5)
  1. APIDRA [Suspect]
     Indication: TYPE 1 DIABETES MELLITUS
     Dosage: DOSAGE: SLIDING SCALE
     Route: 058
  2. APIDRA [Suspect]
     Indication: TYPE 1 DIABETES MELLITUS
     Route: 058
     Dates: start: 20120501
  3. SOLOSTAR [Suspect]
     Indication: TYPE 1 DIABETES MELLITUS
  4. LANTUS [Suspect]
     Indication: TYPE 1 DIABETES MELLITUS
     Dosage: DOSE:18 UNIT(S)
     Route: 058
  5. VICTOZA [Concomitant]

REACTIONS (6)
  - Weight decreased [Unknown]
  - Incorrect product storage [Unknown]
  - Blood glucose increased [Unknown]
  - Therapeutic response delayed [Unknown]
  - Blood glucose decreased [Unknown]
  - Incorrect dose administered [Unknown]
